FAERS Safety Report 14182444 (Version 1)
Quarter: 2017Q4

REPORT INFORMATION
  Report Type: Spontaneous
  Country: FR (occurrence: FR)
  Receive Date: 20171113
  Receipt Date: 20171113
  Transmission Date: 20180321
  Serious: Yes (Life-Threatening, Hospitalization)
  Sender: FDA-Public Use
  Company Number: FR-ROCHE-2024191

PATIENT
  Age: 86 Year
  Sex: Female

DRUGS (5)
  1. ACTILYSE [Suspect]
     Active Substance: ALTEPLASE
     Indication: ISCHAEMIC STROKE
     Dosage: 5 MG BOLUS PLUS 49 MG; TIME 00:50
     Route: 042
     Dates: start: 20171012, end: 20171012
  2. FUROSEMIDE RENAUDIN [Concomitant]
     Active Substance: FUROSEMIDE
     Dosage: 20 MG/2 ML
     Route: 051
  3. UMULINE [Concomitant]
     Active Substance: INSULIN HUMAN
  4. AMOXICILLIN/CLAVULANIC ACID [Concomitant]
     Active Substance: AMOXICILLIN\CLAVULANIC ACID
     Route: 065
  5. THYROXINE SODIUM [Concomitant]
     Active Substance: LEVOTHYROXINE SODIUM
     Route: 042

REACTIONS (2)
  - Haemorrhagic transformation stroke [Not Recovered/Not Resolved]
  - Intracranial mass [Not Recovered/Not Resolved]

NARRATIVE: CASE EVENT DATE: 20171014
